FAERS Safety Report 9437052 (Version 1)
Quarter: 2013Q3

REPORT INFORMATION
  Report Type: Spontaneous
  Country: US (occurrence: US)
  Receive Date: 20130802
  Receipt Date: 20130802
  Transmission Date: 20140515
  Serious: Yes (Hospitalization)
  Sender: FDA-Public Use
  Company Number: US-PFIZER INC-2013224013

PATIENT
  Sex: Male
  Weight: 181 kg

DRUGS (4)
  1. LYRICA [Suspect]
     Indication: DIABETIC NEUROPATHY
     Dosage: 300 MG, 1X/DAY
  2. LYRICA [Suspect]
     Indication: NEURALGIA
     Dosage: 300 MG, 2X/DAY
  3. LYRICA [Suspect]
     Indication: DIABETIC NEUROPATHY
  4. INSULIN [Suspect]
     Dosage: UNK

REACTIONS (6)
  - Incorrect dose administered [Unknown]
  - Blood glucose abnormal [Unknown]
  - Drug ineffective [Unknown]
  - Pain in extremity [Unknown]
  - Fatigue [Unknown]
  - Memory impairment [Unknown]
